FAERS Safety Report 17093522 (Version 1)
Quarter: 2019Q4

REPORT INFORMATION
  Report Type: Spontaneous
  Country: FR (occurrence: FR)
  Receive Date: 20191129
  Receipt Date: 20191129
  Transmission Date: 20200122
  Serious: Yes (Life-Threatening, Other)
  Sender: FDA-Public Use
  Company Number: FR-CHEPLA-C20193075

PATIENT
  Age: 13 Year
  Sex: Male

DRUGS (1)
  1. ETOPOPHOS [Suspect]
     Active Substance: ETOPOSIDE PHOSPHATE
     Indication: TRANSPLANT
     Route: 042
     Dates: start: 20191008, end: 20191010

REACTIONS (12)
  - Hypoxia [Unknown]
  - Oedema [Unknown]
  - Blood bilirubin increased [Unknown]
  - Product use in unapproved indication [Recovered/Resolved]
  - Engraftment syndrome [Recovered/Resolved]
  - Hepatomegaly [Unknown]
  - Chest pain [Unknown]
  - Cholestasis [Unknown]
  - Weight increased [Unknown]
  - Acute kidney injury [Unknown]
  - Hyperaemia [Unknown]
  - Pulmonary mycosis [Not Recovered/Not Resolved]

NARRATIVE: CASE EVENT DATE: 20191008
